FAERS Safety Report 14695554 (Version 1)
Quarter: 2018Q1

REPORT INFORMATION
  Report Type: Spontaneous
  Country: US (occurrence: US)
  Receive Date: 20180327
  Receipt Date: 20180327
  Transmission Date: 20180509
  Serious: Yes (Hospitalization)
  Sender: FDA-Public Use
  Company Number: None

PATIENT
  Age: 55 Year
  Sex: Female

DRUGS (17)
  1. ATORVASTATIN [Concomitant]
     Active Substance: ATORVASTATIN
  2. TACROLIMUS. [Suspect]
     Active Substance: TACROLIMUS
     Indication: IMMUNOSUPPRESSION
     Dosage: 4 MG / 3 MG EVERY 12 HOURS PO
     Route: 048
     Dates: start: 20170909, end: 20171001
  3. ASPIRIN. [Concomitant]
     Active Substance: ASPIRIN
  4. POLYETHYLENE GLYCOL 3350. [Concomitant]
     Active Substance: POLYETHYLENE GLYCOL 3350
  5. SULFAMETHOXAZOLE/TRIMETHOPRIM [Concomitant]
     Active Substance: SULFAMETHOXAZOLE\TRIMETHOPRIM
  6. NYSTATIN. [Concomitant]
     Active Substance: NYSTATIN
  7. RANITIDINE. [Concomitant]
     Active Substance: RANITIDINE
  8. VALGANCICLOVIR. [Concomitant]
     Active Substance: VALGANCICLOVIR
  9. INSULIN ASPART [Concomitant]
     Active Substance: INSULIN ASPART
  10. MYCOPHENOLATE [Concomitant]
     Active Substance: MYCOPHENOLIC ACID
  11. OXYCODONE [Concomitant]
     Active Substance: OXYCODONE
  12. PRENDISONE [Concomitant]
  13. TACROLIMUS. [Concomitant]
     Active Substance: TACROLIMUS
  14. DULOXETINE. [Concomitant]
     Active Substance: DULOXETINE
  15. ROPINIROLE. [Concomitant]
     Active Substance: ROPINIROLE
  16. DOCUSATE [Concomitant]
     Active Substance: DOCUSATE
  17. INSULIN GLARGINE [Concomitant]
     Active Substance: INSULIN GLARGINE

REACTIONS (1)
  - Posterior reversible encephalopathy syndrome [None]

NARRATIVE: CASE EVENT DATE: 20170929
